FAERS Safety Report 15200643 (Version 1)
Quarter: 2018Q3

REPORT INFORMATION
  Report Type: Report from Study
  Country: ES (occurrence: ES)
  Receive Date: 20180726
  Receipt Date: 20180726
  Transmission Date: 20181010
  Serious: Yes (Hospitalization)
  Sender: FDA-Public Use
  Company Number: ES-TEVA-2018-ES-929167

PATIENT
  Age: 81 Year
  Sex: Male

DRUGS (7)
  1. ALOPURINOL (318A) [Concomitant]
     Active Substance: ALLOPURINOL
     Dosage: 100 MG DAY
     Route: 048
     Dates: start: 20110101
  2. RANITIDINA (2A) [Concomitant]
     Active Substance: RANITIDINE
     Dosage: DAY
     Route: 048
     Dates: start: 20110101
  3. PRAVASTATINA (7192A) [Concomitant]
     Dosage: 40 MG CENA
     Route: 048
     Dates: start: 20110101
  4. ATENOLOL (356A) [Suspect]
     Active Substance: ATENOLOL
     Dosage: DAY
     Route: 048
     Dates: start: 20030101, end: 20171207
  5. ENALAPRIL (2142A) [Suspect]
     Active Substance: ENALAPRIL
     Route: 048
     Dates: start: 20030101, end: 20171207
  6. FUROSEMIDA (1615A) [Concomitant]
     Active Substance: FUROSEMIDE
     Dosage: DAY
     Route: 048
     Dates: start: 20110101
  7. SINTROM 4 MG TABLETS, 500 TABLETS [Concomitant]
     Dosage: SP
     Route: 048
     Dates: start: 20110101

REACTIONS (1)
  - Hyperkalaemia [Recovered/Resolved]

NARRATIVE: CASE EVENT DATE: 20171207
